FAERS Safety Report 23975270 (Version 2)
Quarter: 2024Q2

REPORT INFORMATION
  Report Type: Spontaneous
  Country: US (occurrence: US)
  Receive Date: 20240614
  Receipt Date: 20240619
  Transmission Date: 20240716
  Serious: No
  Sender: FDA-Public Use
  Company Number: US-JNJFOC-20240580486

PATIENT
  Age: 66 Year
  Sex: Male

DRUGS (3)
  1. TYLENOL 8HR [Suspect]
     Active Substance: ACETAMINOPHEN
     Indication: Arthritis
     Route: 065
     Dates: start: 20240523
  2. TYLENOL 8HR [Suspect]
     Active Substance: ACETAMINOPHEN
     Indication: Arthralgia
     Dosage: 2 CAPLETS AT NIGHT AND 2 CAPLETS IN THE MORNING
     Route: 065
     Dates: start: 202405
  3. TYLENOL 8HR [Suspect]
     Active Substance: ACETAMINOPHEN
     Dosage: 3 CAPLETS AT NIGHT AND 3 CAPLETS IN THE MORNING
     Route: 065
     Dates: start: 202405

REACTIONS (3)
  - Incorrect dose administered [Unknown]
  - Inappropriate schedule of product administration [Unknown]
  - Product administration error [Unknown]

NARRATIVE: CASE EVENT DATE: 20240523
